FAERS Safety Report 14163222 (Version 1)
Quarter: 2017Q4

REPORT INFORMATION
  Report Type: Report from Study
  Country: IL (occurrence: IL)
  Receive Date: 20171106
  Receipt Date: 20171106
  Transmission Date: 20180321
  Serious: Yes (Hospitalization, Other)
  Sender: FDA-Public Use
  Company Number: IL-MYLANLABS-2017M1068705

PATIENT
  Age: 71 Year
  Sex: Female

DRUGS (3)
  1. AZATHIOPRINE. [Suspect]
     Active Substance: AZATHIOPRINE
     Indication: PEMPHIGUS
     Dosage: INITIAL DOSE NOT STATED; THEN ADMINISTERED 50 [UNIT NOT STATED]
     Route: 065
  2. PREDNISONE. [Suspect]
     Active Substance: PREDNISONE
     Indication: PEMPHIGUS
     Route: 065
  3. AZATHIOPRINE. [Suspect]
     Active Substance: AZATHIOPRINE
     Dosage: 50 [UNIT NOT STATED]
     Route: 065

REACTIONS (3)
  - Diabetes mellitus [Recovered/Resolved]
  - Myopathy [Recovered/Resolved]
  - Oedema peripheral [Recovered/Resolved]
